FAERS Safety Report 4951023-5 (Version None)
Quarter: 2006Q1

REPORT INFORMATION
  Report Type: 
  Country: None (occurrence: None)
  Receive Date: 20060315
  Receipt Date: 20060309
  Transmission Date: 20060701
  Serious: Yes (Other)
  Sender: FDA-Public Use
  Company Number: HQWYE233609MAR06

PATIENT
  Age: 30 Year
  Sex: Male

DRUGS (1)
  1. PANTOPRAZOLE SODIUM [Suspect]
     Dosage: 40 MG 1X PER 1 DAY; ORAL
     Route: 048

REACTIONS (2)
  - IMPAIRED DRIVING ABILITY [None]
  - LETHARGY [None]
